FAERS Safety Report 5779823-2 (Version None)
Quarter: 2008Q2

REPORT INFORMATION
  Report Type: 
  Country: None (occurrence: None)
  Receive Date: 20080620
  Receipt Date: 20080527
  Transmission Date: 20081010
  Serious: Yes (Life-Threatening, Hospitalization, Other)
  Sender: FDA-Public Use
  Company Number: FR-BAYER-200814624GPV

PATIENT
  Age: 36 Year
  Sex: Female

DRUGS (1)
  1. MIRENA [Suspect]
     Indication: CONTRACEPTION
     Route: 015
     Dates: start: 20060101, end: 20080304

REACTIONS (4)
  - ABDOMINAL PAIN LOWER [None]
  - ECTOPIC PREGNANCY WITH INTRAUTERINE DEVICE [None]
  - METRORRHAGIA [None]
  - PERITONEAL HAEMORRHAGE [None]
